FAERS Safety Report 7179590-4 (Version None)
Quarter: 2010Q4

REPORT INFORMATION
  Report Type: 
  Country: None (occurrence: None)
  Receive Date: 20101209
  Receipt Date: 20101129
  Transmission Date: 20110411
  Serious: Yes (Other)
  Sender: FDA-Public Use
  Company Number: VAL_00487_2010

PATIENT
  Age: 82 Year
  Sex: Male

DRUGS (3)
  1. ROCALTROL [Suspect]
     Indication: HYPOCALCAEMIA
     Dosage: (DF)
  2. AMIODARONE [Concomitant]
  3. UNSPECIFIED MEDICATIONS [Concomitant]

REACTIONS (2)
  - ALANINE AMINOTRANSFERASE INCREASED [None]
  - ASPARTATE AMINOTRANSFERASE INCREASED [None]
